FAERS Safety Report 5938095-6 (Version None)
Quarter: 2008Q4

REPORT INFORMATION
  Report Type: 
  Country: None (occurrence: None)
  Receive Date: 20081031
  Receipt Date: 20081028
  Transmission Date: 20090506
  Serious: Yes (Death, Hospitalization)
  Sender: FDA-Public Use
  Company Number: PHHY2008CA24364

PATIENT
  Sex: Male

DRUGS (2)
  1. ZOMETA [Suspect]
     Dosage: 3 MG EVERY 4 WEEKS
     Route: 042
     Dates: start: 20080319
  2. ZOMETA [Suspect]
     Dosage: 3 MG EVERY 4 WEEKS
     Route: 042
     Dates: start: 20080809, end: 20080918

REACTIONS (4)
  - ASTHENIA [None]
  - DEATH [None]
  - MALAISE [None]
  - PAIN [None]
